FAERS Safety Report 23898500 (Version 3)
Quarter: 2024Q3

REPORT INFORMATION
  Report Type: Report from Study
  Country: FR (occurrence: FR)
  Receive Date: 20240525
  Receipt Date: 20240724
  Transmission Date: 20241017
  Serious: Yes (Other)
  Sender: ROCHE
  Company Number: FR-SANDOZ-SDZ2024FR045385

PATIENT
  Age: 79 Year
  Sex: Female

DRUGS (1)
  1. RITUXIMAB [Suspect]
     Active Substance: RITUXIMAB
     Indication: Myasthenia gravis
     Dosage: ONCE TO TWICE A YEAR FOR TWELVE YEARS
     Route: 042
     Dates: start: 2006

REACTIONS (4)
  - Tooth infection [Recovered/Resolved with Sequelae]
  - Dental caries [Recovered/Resolved with Sequelae]
  - Off label use [Unknown]
  - Toothache [Recovered/Resolved with Sequelae]
